FAERS Safety Report 10788227 (Version 1)
Quarter: 2015Q1

REPORT INFORMATION
  Report Type: Report from Study
  Country: KR (occurrence: KR)
  Receive Date: 20150212
  Receipt Date: 20150212
  Transmission Date: 20150721
  Serious: Yes (Death, Hospitalization)
  Sender: FDA-Public Use
  Company Number: KR-JNJFOC-20071004551

PATIENT
  Age: 25 Year
  Sex: Female
  Weight: 43 kg

DRUGS (78)
  1. GOLIMUMAB [Suspect]
     Active Substance: GOLIMUMAB
     Indication: RHEUMATOID ARTHRITIS
     Dosage: WEEK 20
     Route: 058
     Dates: start: 20070425
  2. PLACEBO [Suspect]
     Active Substance: UNSPECIFIED INGREDIENT
     Indication: RHEUMATOID ARTHRITIS
     Dosage: WEEK 24
     Route: 048
     Dates: start: 20070914
  3. PLACEBO [Suspect]
     Active Substance: UNSPECIFIED INGREDIENT
     Indication: RHEUMATOID ARTHRITIS
     Dosage: WEEK 24
     Route: 048
     Dates: start: 20070831
  4. PLACEBO [Suspect]
     Active Substance: UNSPECIFIED INGREDIENT
     Indication: RHEUMATOID ARTHRITIS
     Dosage: WEEK 20
     Route: 048
     Dates: start: 20070511
  5. PLACEBO [Suspect]
     Active Substance: UNSPECIFIED INGREDIENT
     Indication: RHEUMATOID ARTHRITIS
     Dosage: WEEK 20
     Route: 048
     Dates: start: 20070420
  6. PLACEBO [Suspect]
     Active Substance: UNSPECIFIED INGREDIENT
     Indication: RHEUMATOID ARTHRITIS
     Dosage: WEEK 16
     Route: 048
     Dates: start: 20070413
  7. PLACEBO [Suspect]
     Active Substance: UNSPECIFIED INGREDIENT
     Indication: RHEUMATOID ARTHRITIS
     Dosage: WEEK 16
     Route: 048
     Dates: start: 20070330
  8. PLACEBO [Suspect]
     Active Substance: UNSPECIFIED INGREDIENT
     Indication: RHEUMATOID ARTHRITIS
     Route: 048
     Dates: start: 20070316
  9. PLACEBO [Suspect]
     Active Substance: UNSPECIFIED INGREDIENT
     Indication: RHEUMATOID ARTHRITIS
     Route: 048
     Dates: start: 20070223
  10. METHIMAZOLE. [Concomitant]
     Active Substance: METHIMAZOLE
     Indication: HYPERTHYROIDISM
     Dates: start: 20070927, end: 20071018
  11. KETOROLAC TROMETHAMINE. [Concomitant]
     Active Substance: KETOROLAC TROMETHAMINE
     Route: 042
     Dates: start: 20070925, end: 20071025
  12. GOLIMUMAB [Suspect]
     Active Substance: GOLIMUMAB
     Indication: RHEUMATOID ARTHRITIS
     Dosage: WEEK 0
     Route: 058
     Dates: start: 20070919
  13. GOLIMUMAB [Suspect]
     Active Substance: GOLIMUMAB
     Indication: RHEUMATOID ARTHRITIS
     Dosage: WEEK 16
     Route: 058
     Dates: start: 20070328
  14. PLACEBO [Suspect]
     Active Substance: UNSPECIFIED INGREDIENT
     Indication: RHEUMATOID ARTHRITIS
     Dosage: WEEK 24
     Route: 048
     Dates: start: 20070810
  15. PLACEBO [Suspect]
     Active Substance: UNSPECIFIED INGREDIENT
     Indication: RHEUMATOID ARTHRITIS
     Dosage: WEEK 24
     Route: 048
     Dates: start: 20070803
  16. PLACEBO [Suspect]
     Active Substance: UNSPECIFIED INGREDIENT
     Indication: RHEUMATOID ARTHRITIS
     Dosage: WEEK 24
     Route: 048
     Dates: start: 20070713
  17. PLACEBO [Suspect]
     Active Substance: UNSPECIFIED INGREDIENT
     Indication: RHEUMATOID ARTHRITIS
     Dosage: WEEK 20
     Route: 048
     Dates: start: 20070504
  18. PLACEBO [Suspect]
     Active Substance: UNSPECIFIED INGREDIENT
     Indication: RHEUMATOID ARTHRITIS
     Route: 048
     Dates: start: 20070323
  19. PLACEBO [Suspect]
     Active Substance: UNSPECIFIED INGREDIENT
     Indication: RHEUMATOID ARTHRITIS
     Route: 048
     Dates: start: 20070105
  20. EUPATILIN [Concomitant]
     Indication: DYSPEPSIA
     Route: 048
     Dates: start: 20060413, end: 20071025
  21. TRIAMCINOLONE [Concomitant]
     Active Substance: TRIAMCINOLONE
     Route: 014
     Dates: start: 20070627, end: 20070627
  22. LACTULOSE. [Concomitant]
     Active Substance: LACTULOSE
     Route: 048
     Dates: start: 20070925, end: 20071025
  23. GOLIMUMAB [Suspect]
     Active Substance: GOLIMUMAB
     Indication: RHEUMATOID ARTHRITIS
     Dosage: WEEK 4
     Route: 058
     Dates: start: 20070103
  24. PLACEBO [Suspect]
     Active Substance: UNSPECIFIED INGREDIENT
     Indication: RHEUMATOID ARTHRITIS
     Dosage: WEEK 24
     Route: 048
     Dates: start: 20070824
  25. PLACEBO [Suspect]
     Active Substance: UNSPECIFIED INGREDIENT
     Indication: RHEUMATOID ARTHRITIS
     Dosage: WEEK 24
     Route: 048
     Dates: start: 20070608
  26. PLACEBO [Suspect]
     Active Substance: UNSPECIFIED INGREDIENT
     Indication: RHEUMATOID ARTHRITIS
     Route: 048
     Dates: start: 20070202
  27. PLACEBO [Suspect]
     Active Substance: UNSPECIFIED INGREDIENT
     Indication: RHEUMATOID ARTHRITIS
     Route: 048
     Dates: start: 20070119
  28. KETOTOP-PLASTER [Concomitant]
     Dates: start: 20061103
  29. CALCIUM CARBONATE. [Concomitant]
     Active Substance: CALCIUM CARBONATE
     Route: 048
     Dates: start: 20060420
  30. METOCLOPRAMIDE. [Concomitant]
     Active Substance: METOCLOPRAMIDE
     Route: 042
     Dates: start: 20071025, end: 20071025
  31. CAPSOL [Concomitant]
     Route: 042
     Dates: start: 20071013, end: 20071013
  32. FAMOTIDINE. [Concomitant]
     Active Substance: FAMOTIDINE
     Route: 042
     Dates: start: 20071016, end: 20071025
  33. METHYLPREDNISOLONE SODIUM SUCCINATE. [Concomitant]
     Active Substance: METHYLPREDNISOLONE SODIUM SUCCINATE
     Route: 042
     Dates: start: 20071024, end: 20071024
  34. HERBAL MEDICINE [Concomitant]
     Dosage: 1 BAG THREE TIMES A DAY.
     Route: 048
     Dates: start: 20070115, end: 20070201
  35. GOLIMUMAB [Suspect]
     Active Substance: GOLIMUMAB
     Indication: RHEUMATOID ARTHRITIS
     Dosage: WEEK 8
     Route: 058
     Dates: start: 20070131
  36. PLACEBO [Suspect]
     Active Substance: UNSPECIFIED INGREDIENT
     Indication: RHEUMATOID ARTHRITIS
     Dosage: WEEK 24
     Route: 048
     Dates: start: 20071012
  37. PLACEBO [Suspect]
     Active Substance: UNSPECIFIED INGREDIENT
     Indication: RHEUMATOID ARTHRITIS
     Route: 048
     Dates: start: 20070216
  38. PLACEBO [Suspect]
     Active Substance: UNSPECIFIED INGREDIENT
     Indication: RHEUMATOID ARTHRITIS
     Route: 048
     Dates: start: 20070126
  39. PLACEBO [Suspect]
     Active Substance: UNSPECIFIED INGREDIENT
     Indication: RHEUMATOID ARTHRITIS
     Route: 048
     Dates: start: 20070112
  40. PLACEBO [Suspect]
     Active Substance: UNSPECIFIED INGREDIENT
     Indication: RHEUMATOID ARTHRITIS
     Route: 048
     Dates: start: 20061215
  41. PROPACETAMOL [Concomitant]
     Active Substance: PROPACETAMOL
     Route: 042
     Dates: start: 20071013, end: 20071013
  42. GOLIMUMAB [Suspect]
     Active Substance: GOLIMUMAB
     Indication: RHEUMATOID ARTHRITIS
     Dosage: WEEK 36
     Route: 058
     Dates: start: 20070822
  43. PLACEBO [Suspect]
     Active Substance: UNSPECIFIED INGREDIENT
     Indication: RHEUMATOID ARTHRITIS
     Dosage: WEEK 24
     Route: 048
     Dates: start: 20070907
  44. PLACEBO [Suspect]
     Active Substance: UNSPECIFIED INGREDIENT
     Indication: RHEUMATOID ARTHRITIS
     Dosage: WEEK 24
     Route: 048
     Dates: start: 20070727
  45. PLACEBO [Suspect]
     Active Substance: UNSPECIFIED INGREDIENT
     Indication: RHEUMATOID ARTHRITIS
     Dosage: WEEK 24
     Route: 048
     Dates: start: 20070615
  46. PLACEBO [Suspect]
     Active Substance: UNSPECIFIED INGREDIENT
     Indication: RHEUMATOID ARTHRITIS
     Dosage: WEEK 24
     Route: 048
     Dates: start: 20070525
  47. PLACEBO [Suspect]
     Active Substance: UNSPECIFIED INGREDIENT
     Indication: RHEUMATOID ARTHRITIS
     Route: 048
     Dates: start: 20070209
  48. PLACEBO [Suspect]
     Active Substance: UNSPECIFIED INGREDIENT
     Indication: RHEUMATOID ARTHRITIS
     Route: 048
     Dates: start: 20061222
  49. NABUMETONE. [Concomitant]
     Active Substance: NABUMETONE
     Route: 048
     Dates: start: 20060413
  50. FOLIC ACID. [Concomitant]
     Active Substance: FOLIC ACID
     Route: 048
     Dates: start: 20060503
  51. METHYMAZOLE [Concomitant]
     Route: 048
     Dates: start: 20070927, end: 20071018
  52. MEGESTROL ACETATE. [Concomitant]
     Active Substance: MEGESTROL ACETATE
     Route: 048
     Dates: start: 20071024, end: 20071025
  53. PLACEBO [Suspect]
     Active Substance: UNSPECIFIED INGREDIENT
     Indication: RHEUMATOID ARTHRITIS
     Dosage: WEEK 24
     Route: 048
     Dates: start: 20070928
  54. PLACEBO [Suspect]
     Active Substance: UNSPECIFIED INGREDIENT
     Indication: RHEUMATOID ARTHRITIS
     Dosage: WEEK 24
     Route: 048
     Dates: start: 20070706
  55. PLACEBO [Suspect]
     Active Substance: UNSPECIFIED INGREDIENT
     Indication: RHEUMATOID ARTHRITIS
     Dosage: WEEK 24
     Route: 048
     Dates: start: 20070629
  56. PLACEBO [Suspect]
     Active Substance: UNSPECIFIED INGREDIENT
     Indication: RHEUMATOID ARTHRITIS
     Dosage: WEEK 24
     Route: 048
     Dates: start: 20070622
  57. PLACEBO [Suspect]
     Active Substance: UNSPECIFIED INGREDIENT
     Indication: RHEUMATOID ARTHRITIS
     Dosage: WEEK 24
     Route: 048
     Dates: start: 20070601
  58. PLACEBO [Suspect]
     Active Substance: UNSPECIFIED INGREDIENT
     Indication: RHEUMATOID ARTHRITIS
     Dosage: WEEK 20
     Route: 048
     Dates: start: 20070518
  59. PLACEBO [Suspect]
     Active Substance: UNSPECIFIED INGREDIENT
     Indication: RHEUMATOID ARTHRITIS
     Dosage: WEEK 20
     Route: 048
     Dates: start: 20070427
  60. PLACEBO [Suspect]
     Active Substance: UNSPECIFIED INGREDIENT
     Indication: RHEUMATOID ARTHRITIS
     Dosage: WEEK 16
     Route: 048
     Dates: start: 20070413
  61. TRIAMCINOLONE [Concomitant]
     Active Substance: TRIAMCINOLONE
     Route: 014
     Dates: start: 20070919, end: 20070919
  62. METOCLOPRAMIDE. [Concomitant]
     Active Substance: METOCLOPRAMIDE
     Route: 042
     Dates: start: 20071013, end: 20071013
  63. METHYLPREDNISOLONE SODIUM SUCCINATE. [Concomitant]
     Active Substance: METHYLPREDNISOLONE SODIUM SUCCINATE
     Route: 042
     Dates: start: 20071025, end: 20071025
  64. GOLIMUMAB [Suspect]
     Active Substance: GOLIMUMAB
     Indication: RHEUMATOID ARTHRITIS
     Dosage: WEEK 32
     Route: 058
     Dates: start: 20070725
  65. GOLIMUMAB [Suspect]
     Active Substance: GOLIMUMAB
     Indication: RHEUMATOID ARTHRITIS
     Dosage: WEEK 28
     Route: 058
     Dates: start: 20070627
  66. GOLIMUMAB [Suspect]
     Active Substance: GOLIMUMAB
     Indication: RHEUMATOID ARTHRITIS
     Dosage: WEEK 12
     Route: 058
     Dates: start: 20070228
  67. GOLIMUMAB [Suspect]
     Active Substance: GOLIMUMAB
     Indication: RHEUMATOID ARTHRITIS
     Route: 058
     Dates: start: 20061208
  68. PLACEBO [Suspect]
     Active Substance: UNSPECIFIED INGREDIENT
     Indication: RHEUMATOID ARTHRITIS
     Dosage: WEEK 24
     Route: 048
     Dates: start: 20070921
  69. PLACEBO [Suspect]
     Active Substance: UNSPECIFIED INGREDIENT
     Indication: RHEUMATOID ARTHRITIS
     Dosage: WEEK 24
     Route: 048
     Dates: start: 20070720
  70. PLACEBO [Suspect]
     Active Substance: UNSPECIFIED INGREDIENT
     Indication: RHEUMATOID ARTHRITIS
     Route: 048
     Dates: start: 20070302
  71. PLACEBO [Suspect]
     Active Substance: UNSPECIFIED INGREDIENT
     Indication: RHEUMATOID ARTHRITIS
     Route: 048
     Dates: start: 20061229
  72. PROPACETAMOL [Concomitant]
     Active Substance: PROPACETAMOL
     Route: 042
     Dates: start: 20071022, end: 20071024
  73. GOLIMUMAB [Suspect]
     Active Substance: GOLIMUMAB
     Indication: RHEUMATOID ARTHRITIS
     Dosage: WEEK 24
     Route: 058
     Dates: start: 20070530
  74. PLACEBO [Suspect]
     Active Substance: UNSPECIFIED INGREDIENT
     Indication: RHEUMATOID ARTHRITIS
     Dosage: WEEK 24
     Route: 048
     Dates: start: 20071005
  75. PLACEBO [Suspect]
     Active Substance: UNSPECIFIED INGREDIENT
     Indication: RHEUMATOID ARTHRITIS
     Dosage: WEEK 24
     Route: 048
     Dates: start: 20070817
  76. PLACEBO [Suspect]
     Active Substance: UNSPECIFIED INGREDIENT
     Indication: RHEUMATOID ARTHRITIS
     Dosage: WEEK 16
     Route: 048
     Dates: start: 20070406
  77. PREDNISONE. [Concomitant]
     Active Substance: PREDNISONE
     Route: 048
     Dates: start: 20060726
  78. METRONIDAZOLE. [Concomitant]
     Active Substance: METRONIDAZOLE
     Route: 042
     Dates: start: 20071025, end: 20071025

REACTIONS (3)
  - Acute hepatic failure [Fatal]
  - Hepatitis [Not Recovered/Not Resolved]
  - Pyrexia [Recovered/Resolved]

NARRATIVE: CASE EVENT DATE: 20071008
